FAERS Safety Report 19912583 (Version 3)
Quarter: 2021Q4

REPORT INFORMATION
  Report Type: Report from Study
  Country: MX (occurrence: MX)
  Receive Date: 20211004
  Receipt Date: 20211210
  Transmission Date: 20220303
  Serious: Yes (Death, Hospitalization)
  Sender: FDA-Public Use
  Company Number: NVSC2021MX223134

PATIENT
  Age: 29 Year
  Sex: Male
  Weight: 55 kg

DRUGS (2)
  1. ELTROMBOPAG OLAMINE [Suspect]
     Active Substance: ELTROMBOPAG OLAMINE
     Indication: Platelet disorder
     Dosage: 25 MG, TID (1 DF)
     Route: 048
     Dates: start: 20210911
  2. ELTROMBOPAG OLAMINE [Suspect]
     Active Substance: ELTROMBOPAG OLAMINE
     Indication: Immune thrombocytopenia

REACTIONS (3)
  - Immune thrombocytopenia [Fatal]
  - Haemorrhage [Not Recovered/Not Resolved]
  - Speech disorder [Not Recovered/Not Resolved]

NARRATIVE: CASE EVENT DATE: 20210911
